FAERS Safety Report 24731443 (Version 1)
Quarter: 2024Q4

REPORT INFORMATION
  Report Type: Spontaneous
  Country: UA (occurrence: UA)
  Receive Date: 20241213
  Receipt Date: 20241213
  Transmission Date: 20250114
  Serious: Yes (Death)
  Sender: MYLAN
  Company Number: UA-MYLANLABS-2024M1111971

PATIENT
  Age: 62 Year
  Sex: Female

DRUGS (2)
  1. PRETOMANID [Suspect]
     Active Substance: PRETOMANID
     Indication: Tuberculosis
     Dosage: 0.2 GRAM, QD
     Route: 048
     Dates: start: 20241023, end: 20241118
  2. BEDAQUILINE [Suspect]
     Active Substance: BEDAQUILINE
     Indication: Tuberculosis
     Dosage: 0.2 GRAM, QD
     Route: 048
     Dates: start: 20241023, end: 20241118

REACTIONS (1)
  - Death [Fatal]

NARRATIVE: CASE EVENT DATE: 20241120
